FAERS Safety Report 22540824 (Version 1)
Quarter: 2023Q2

REPORT INFORMATION
  Report Type: Spontaneous
  Country: US (occurrence: None)
  Receive Date: 20230608
  Receipt Date: 20230608
  Transmission Date: 20230721
  Serious: No
  Sender: FDA-Public Use
  Company Number: None

PATIENT
  Age: 66 Year
  Sex: Female

DRUGS (15)
  1. CAPECITABINE [Suspect]
     Active Substance: CAPECITABINE
     Indication: Colon cancer
     Dosage: OTHER QUANTITY : 3T 14D ON/7DOFF;?OTHER FREQUENCY : Q 12 H;?
     Route: 048
     Dates: start: 20230607
  2. ASPIRIN [Concomitant]
     Active Substance: ASPIRIN
  3. BIOTIN [Concomitant]
     Active Substance: BIOTIN
  4. CAPECITABINE [Concomitant]
  5. FAMOTIDINE [Concomitant]
     Active Substance: FAMOTIDINE
  6. VITAMINS [Concomitant]
     Active Substance: VITAMINS
  7. NAPROXEN [Concomitant]
  8. ONDANSETRON [Concomitant]
     Active Substance: ONDANSETRON
  9. SIMVASTATIN [Concomitant]
     Active Substance: SIMVASTATIN
  10. VENLAFAXINE [Concomitant]
  11. VITAMIN D3 [Concomitant]
  12. XANAX [Concomitant]
  13. XYZAL [Concomitant]
  14. ZYRTEC [Concomitant]
  15. OXALIPLATIN [Concomitant]

REACTIONS (1)
  - Drug hypersensitivity [None]

NARRATIVE: CASE EVENT DATE: 20230607
